FAERS Safety Report 14403470 (Version 2)
Quarter: 2018Q1

REPORT INFORMATION
  Report Type: Spontaneous
  Country: US (occurrence: US)
  Receive Date: 20180117
  Receipt Date: 20180319
  Transmission Date: 20180509
  Serious: No
  Sender: FDA-Public Use
  Company Number: US-MYLANLABS-2018M1003072

PATIENT
  Sex: Female
  Weight: 57 kg

DRUGS (1)
  1. ESTRADIOL TRANSDERMAL SYSTEM [Suspect]
     Active Substance: ESTRADIOL
     Indication: MENOPAUSE
     Dosage: 0.05 MG, Q2W
     Route: 062
     Dates: start: 20171226, end: 20171229

REACTIONS (2)
  - Application site rash [Recovering/Resolving]
  - Product quality issue [None]

NARRATIVE: CASE EVENT DATE: 20171229
